FAERS Safety Report 10018589 (Version 1)
Quarter: 2014Q1

REPORT INFORMATION
  Report Type: Spontaneous
  Country: CA (occurrence: CA)
  Receive Date: 20140318
  Receipt Date: 20140318
  Transmission Date: 20141002
  Serious: Yes (Hospitalization)
  Sender: FDA-Public Use
  Company Number: CA-VERTEX PHARMACEUTICALS INC-2014-001298

PATIENT
  Sex: Male

DRUGS (3)
  1. INCIVEK [Suspect]
     Indication: HEPATITIS C
     Route: 048
  2. PEGASYS [Suspect]
     Indication: HEPATITIS C
  3. RIBAVIRIN [Suspect]
     Indication: HEPATITIS C

REACTIONS (10)
  - Multi-organ failure [Recovered/Resolved]
  - Immune system disorder [Recovered/Resolved]
  - Neoplasm recurrence [Unknown]
  - Pain [Not Recovered/Not Resolved]
  - Anxiety [Unknown]
  - Weight decreased [Not Recovered/Not Resolved]
  - Feeling cold [Not Recovered/Not Resolved]
  - Dry skin [Recovering/Resolving]
  - Vomiting [Recovered/Resolved]
  - Pruritus [Recovered/Resolved]
